FAERS Safety Report 5100693-X (Version None)
Quarter: 2006Q3

REPORT INFORMATION
  Report Type: 
  Country: None (occurrence: None)
  Receive Date: 20060906
  Receipt Date: 20050826
  Transmission Date: 20061208
  Serious: Yes (Hospitalization)
  Sender: FDA-Public Use
  Company Number: ALMO2005044

PATIENT
  Age: 65 Year
  Sex: Female

DRUGS (1)
  1. ALMOTRIPTAN MALATE [Suspect]
     Indication: MIGRAINE
     Dates: start: 20020101, end: 20050602

REACTIONS (1)
  - RETINAL DETACHMENT [None]
